FAERS Safety Report 5503318-4 (Version None)
Quarter: 2007Q4

REPORT INFORMATION
  Report Type: 
  Country: None (occurrence: None)
  Receive Date: 20071031
  Receipt Date: 20071029
  Transmission Date: 20080405
  Serious: Yes (Hospitalization)
  Sender: FDA-Public Use
  Company Number: US-BOEHRINGER INGELHEIM PHARMACEUTICALS, INC.-2006-BP-09554BP

PATIENT
  Age: 73 Year
  Sex: Female

DRUGS (4)
  1. SPIRIVA [Suspect]
     Indication: CHRONIC OBSTRUCTIVE PULMONARY DISEASE
     Route: 055
     Dates: start: 20040101
  2. ALBUTEROL [Concomitant]
  3. DIABETIC MED INSULIN [Concomitant]
     Indication: DIABETES MELLITUS
  4. OXYGEN [Concomitant]

REACTIONS (4)
  - ASTHMA [None]
  - CHOLELITHIASIS [None]
  - DRUG INEFFECTIVE [None]
  - DYSPNOEA [None]
